FAERS Safety Report 6539392-6 (Version None)
Quarter: 2010Q1

REPORT INFORMATION
  Report Type: 
  Country: None (occurrence: None)
  Receive Date: 20100111
  Receipt Date: 20091223
  Transmission Date: 20100710
  Serious: Yes (Other)
  Sender: FDA-Public Use
  Company Number: 2009003763

PATIENT
  Age: 63 Year
  Sex: Male
  Weight: 91.6 kg

DRUGS (14)
  1. ERLOTINIB HYDROCHLORIDE [Suspect]
     Indication: NON-SMALL CELL LUNG CANCER
     Dosage: 250 MG, QD, ORAL
     Route: 048
     Dates: start: 20091106, end: 20091114
  2. MAGNESIUM OXIDE (MAGNESIUM OXIDE) [Concomitant]
  3. ALBUTEROL [Concomitant]
  4. IPRATROPIUM BROMIDE [Concomitant]
  5. DIGOXIN [Concomitant]
  6. AMITRIPTYLINE HYDROCHLORIDE [Concomitant]
  7. CARDIZEM CD [Concomitant]
  8. OXYGEN (OXYGEN) [Concomitant]
  9. FLUTICASONE PROPIONATE [Concomitant]
  10. CIPROFLOXACIN [Concomitant]
  11. AUGMENTIN '125' [Concomitant]
  12. POTASSIUM CHLORIDE [Concomitant]
  13. ARANESP [Concomitant]
  14. LASIX [Concomitant]

REACTIONS (11)
  - ANAEMIA [None]
  - ASTHENIA [None]
  - BRONCHITIS [None]
  - DYSPNOEA [None]
  - FATIGUE [None]
  - HYPOKALAEMIA [None]
  - HYPOMAGNESAEMIA [None]
  - HYPONATRAEMIA [None]
  - OEDEMA [None]
  - OEDEMA PERIPHERAL [None]
  - PNEUMONIA [None]
